FAERS Safety Report 7319509-6 (Version None)
Quarter: 2011Q1

REPORT INFORMATION
  Report Type: 
  Country: None (occurrence: None)
  Receive Date: 20110228
  Receipt Date: 20100423
  Transmission Date: 20110831
  Serious: No
  Sender: FDA-Public Use
  Company Number: A0856496A

PATIENT
  Sex: Male

DRUGS (3)
  1. LAMOTRIGINE [Suspect]
     Indication: EPILEPSY
     Dosage: 200MG TWICE PER DAY
     Route: 048
     Dates: start: 20100402
  2. KLONOPIN [Concomitant]
  3. TEGRETOL [Concomitant]

REACTIONS (4)
  - TANNING [None]
  - RASH MACULAR [None]
  - OVERDOSE [None]
  - RASH [None]
